FAERS Safety Report 4706669-6 (Version None)
Quarter: 2005Q3

REPORT INFORMATION
  Report Type: 
  Country: None (occurrence: None)
  Receive Date: 20050705
  Receipt Date: 20050627
  Transmission Date: 20060218
  Serious: Yes (Other)
  Sender: FDA-Public Use
  Company Number: CA-ROCHE-409103

PATIENT
  Age: 39 Year
  Sex: Female

DRUGS (2)
  1. XENICAL [Suspect]
     Indication: WEIGHT CONTROL
     Route: 048
     Dates: start: 20050126, end: 20050520
  2. MULTI-VITAMIN [Concomitant]
     Route: 048

REACTIONS (2)
  - ABORTION SPONTANEOUS [None]
  - DRUG EXPOSURE DURING PREGNANCY [None]
